FAERS Safety Report 18047160 (Version 1)
Quarter: 2020Q3

REPORT INFORMATION
  Report Type: Report from Study
  Country: US (occurrence: US)
  Receive Date: 20200720
  Receipt Date: 20200720
  Transmission Date: 20201103
  Serious: Yes (Other)
  Sender: FDA-Public Use
  Company Number: US-TAKEDA-2020TUS018603

PATIENT
  Sex: Male

DRUGS (1)
  1. IXAZOMIB [Suspect]
     Active Substance: IXAZOMIB
     Indication: PLASMA CELL MYELOMA
     Dosage: 4 MILLIGRAM
     Route: 065
     Dates: end: 20200715

REACTIONS (6)
  - Fatigue [Unknown]
  - Vomiting [Unknown]
  - Somnolence [Unknown]
  - Plasma cell myeloma [Unknown]
  - Diarrhoea [Unknown]
  - Product dose omission issue [Unknown]
